FAERS Safety Report 4739527-1 (Version None)
Quarter: 2005Q3

REPORT INFORMATION
  Report Type: 
  Country: None (occurrence: None)
  Receive Date: 20050810
  Receipt Date: 20050401
  Transmission Date: 20060218
  Serious: No
  Sender: FDA-Public Use
  Company Number: US-GLAXOSMITHKLINE-A0552310A

PATIENT
  Age: 65 Year
  Sex: Female

DRUGS (9)
  1. PAXIL [Suspect]
     Dosage: 40MG PER DAY
     Route: 048
     Dates: start: 19940101
  2. SYNTHROID [Suspect]
     Indication: HORMONE REPLACEMENT THERAPY
     Dosage: 100MG UNKNOWN
     Route: 048
     Dates: start: 20050201
  3. XANAX [Concomitant]
     Dosage: .1MG PER DAY
     Route: 048
  4. NEXIUM [Concomitant]
  5. CRESTOR [Concomitant]
  6. ATENOLOL [Concomitant]
  7. BENTYL [Concomitant]
  8. BACTRIM [Concomitant]
  9. ANTIBIOTIC [Concomitant]

REACTIONS (8)
  - AGITATION [None]
  - CONFUSIONAL STATE [None]
  - MENTAL IMPAIRMENT [None]
  - PALPITATIONS [None]
  - PANIC ATTACK [None]
  - SEXUAL DYSFUNCTION [None]
  - THERAPEUTIC RESPONSE DECREASED [None]
  - WEIGHT INCREASED [None]
